FAERS Safety Report 23413103 (Version 1)
Quarter: 2024Q1

REPORT INFORMATION
  Report Type: Spontaneous
  Country: US (occurrence: US)
  Receive Date: 20240117
  Receipt Date: 20240117
  Transmission Date: 20240410
  Serious: No
  Sender: FDA-Public Use
  Company Number: US-NOVOPROD-1127516

PATIENT
  Age: 60 Year
  Sex: Male

DRUGS (1)
  1. OZEMPIC [Suspect]
     Active Substance: SEMAGLUTIDE
     Indication: Diabetes mellitus
     Dosage: UNK
     Route: 058
     Dates: start: 20190704, end: 20230706

REACTIONS (10)
  - Back pain [Recovered/Resolved]
  - Eye pain [Recovered/Resolved]
  - Blepharospasm [Unknown]
  - Unevaluable event [Recovered/Resolved]
  - Weight decreased [Unknown]
  - Nausea [Recovered/Resolved]
  - Vomiting [Unknown]
  - Dyspepsia [Recovered/Resolved]
  - Fatigue [Recovered/Resolved]
  - Blood glucose increased [Unknown]

NARRATIVE: CASE EVENT DATE: 20230615
